FAERS Safety Report 21659045 (Version 1)
Quarter: 2022Q4

REPORT INFORMATION
  Report Type: Spontaneous
  Country: US (occurrence: US)
  Receive Date: 20221129
  Receipt Date: 20221129
  Transmission Date: 20230112
  Serious: Yes (Other)
  Sender: FDA-Public Use
  Company Number: US-ALLERGAN-2239303US

PATIENT
  Sex: Male

DRUGS (3)
  1. QULIPTA [Suspect]
     Active Substance: ATOGEPANT
     Indication: Rheumatoid arthritis
     Dosage: UNK
  2. QULIPTA [Suspect]
     Active Substance: ATOGEPANT
     Indication: Psoriasis
  3. QULIPTA [Suspect]
     Active Substance: ATOGEPANT
     Indication: Colitis ulcerative

REACTIONS (2)
  - Knee operation [Recovered/Resolved]
  - Off label use [Unknown]

NARRATIVE: CASE EVENT DATE: 20220901
